FAERS Safety Report 8480376-9 (Version None)
Quarter: 2012Q3

REPORT INFORMATION
  Report Type: 
  Country: None (occurrence: None)
  Receive Date: 20120702
  Receipt Date: 20120627
  Transmission Date: 20120928
  Serious: Yes (Other)
  Sender: FDA-Public Use
  Company Number: SI-AMGEN-SVNSP2012039989

PATIENT
  Sex: Female

DRUGS (3)
  1. PLIVIT D3 [Concomitant]
     Indication: OSTEOPOROSIS
     Dosage: 35 GTT, QWK
     Route: 048
     Dates: start: 20091014
  2. CALCIUM CARBONATE [Concomitant]
     Indication: OSTEOPOROSIS
     Dosage: 1 G, UNK
     Route: 048
     Dates: start: 20091014
  3. PROLIA [Suspect]
     Indication: OSTEOPOROSIS
     Dosage: 60 MG, Q6MO
     Route: 030
     Dates: start: 20120111

REACTIONS (2)
  - OSTEOARTHRITIS [None]
  - OSTEONECROSIS OF JAW [None]
